FAERS Safety Report 17214871 (Version 1)
Quarter: 2019Q4

REPORT INFORMATION
  Report Type: Spontaneous
  Country: US (occurrence: US)
  Receive Date: 20191206
  Receipt Date: 20191206
  Transmission Date: 20200122
  Serious: Yes (Hospitalization)
  Sender: FDA-Public Use
  Company Number: None

PATIENT
  Age: 73 Year
  Sex: Female

DRUGS (25)
  1. MUPIROCIN. [Concomitant]
     Active Substance: MUPIROCIN
  2. PANTOPRAZOLE [Concomitant]
     Active Substance: PANTOPRAZOLE
  3. PRIMIDONE. [Concomitant]
     Active Substance: PRIMIDONE
  4. VERAPAMIL [Concomitant]
     Active Substance: VERAPAMIL HYDROCHLORIDE
  5. MEROPENEM. [Suspect]
     Active Substance: MEROPENEM
     Indication: BRONCHIECTASIS
  6. AMITRIPTYLIN [Concomitant]
     Active Substance: AMITRIPTYLINE
  7. LORAZEPAM. [Concomitant]
     Active Substance: LORAZEPAM
  8. METHYLPRED [Concomitant]
     Active Substance: METHYLPREDNISOLONE
  9. METOPROLOL SUCC [Concomitant]
     Active Substance: METOPROLOL SUCCINATE
  10. PREDNISONE. [Concomitant]
     Active Substance: PREDNISONE
  11. TOBRAMYCIN. [Concomitant]
     Active Substance: TOBRAMYCIN
  12. DUREZOL [Concomitant]
     Active Substance: DIFLUPREDNATE
  13. ESCITALOPRAM [Concomitant]
     Active Substance: ESCITALOPRAM OXALATE
  14. FORADIL [Concomitant]
     Active Substance: FORMOTEROL FUMARATE
  15. RESTASIS [Concomitant]
     Active Substance: CYCLOSPORINE
  16. TRELEGY ELLIPTA [Concomitant]
     Active Substance: FLUTICASONE FUROATE\UMECLIDINIUM BROMIDE\VILANTEROL TRIFENATATE
  17. ILEVRO [Concomitant]
     Active Substance: NEPAFENAC
  18. SOD CHL 3% [Concomitant]
  19. CIPROFLOXACIN. [Concomitant]
     Active Substance: CIPROFLOXACIN
  20. DIAZEPAM. [Concomitant]
     Active Substance: DIAZEPAM
  21. MAGNESIUM OXIDE. [Concomitant]
     Active Substance: MAGNESIUM OXIDE
  22. SPIRIVA [Concomitant]
     Active Substance: TIOTROPIUM BROMIDE MONOHYDRATE
  23. LBUPROFEN [Concomitant]
  24. NITROFURANTIN [Concomitant]
     Active Substance: NITROFURANTOIN
  25. ALVESCO [Concomitant]
     Active Substance: CICLESONIDE

REACTIONS (1)
  - Hypersensitivity [None]
